FAERS Safety Report 24237660 (Version 1)
Quarter: 2024Q3

REPORT INFORMATION
  Report Type: Spontaneous
  Country: US (occurrence: None)
  Receive Date: 20240821
  Receipt Date: 20240821
  Transmission Date: 20241016
  Serious: Yes (Other)
  Sender: Public
  Company Number: None

PATIENT
  Age: 48 Year
  Sex: Female
  Weight: 96.75 kg

DRUGS (11)
  1. LINZESS [Suspect]
     Active Substance: LINACLOTIDE
     Indication: Irritable bowel syndrome
     Dosage: 1 CAPSULE ORAL
     Route: 048
     Dates: start: 20240301, end: 20240803
  2. CAPLYTA [Concomitant]
     Active Substance: LUMATEPERONE
  3. BUPROPION [Concomitant]
  4. Omprezole [Concomitant]
  5. METHYLPHENIDATE [Concomitant]
  6. LEVOTHYROXINE [Concomitant]
  7. Hydroxyzibe [Concomitant]
  8. NM-6603 [Concomitant]
     Active Substance: NM-6603
  9. FOLIC ACID [Concomitant]
  10. Multivitamin [Concomitant]
  11. D2 [Concomitant]

REACTIONS (6)
  - Abdominal distension [None]
  - Muscle spasms [None]
  - Constipation [None]
  - Faeces hard [None]
  - Diarrhoea [None]
  - Therapy cessation [None]

NARRATIVE: CASE EVENT DATE: 20240820
